FAERS Safety Report 21083100 (Version 5)
Quarter: 2023Q1

REPORT INFORMATION
  Report Type: Spontaneous
  Country: US (occurrence: US)
  Receive Date: 20220714
  Receipt Date: 20230317
  Transmission Date: 20230417
  Serious: Yes (Other)
  Sender: FDA-Public Use
  Company Number: US-PFIZER INC-202200949804

PATIENT
  Age: 58 Year
  Sex: Female
  Weight: 51.26 kg

DRUGS (3)
  1. CARBOCAINE [Suspect]
     Active Substance: MEPIVACAINE HYDROCHLORIDE
     Indication: Tooth extraction
     Dosage: 3.4 ML
     Dates: start: 20220705
  2. AMOXICILLIN [Concomitant]
     Active Substance: AMOXICILLIN
     Indication: Tooth infection
     Dosage: UNK, 3X/DAY (500MG 3 TIMES DAY AND THEN AFTER 2-3 DAYS WENT TO 250MG)
     Dates: start: 20220623, end: 20220630
  3. FISH OIL [Concomitant]
     Active Substance: FISH OIL
     Dosage: UNK

REACTIONS (15)
  - Facial paralysis [Recovering/Resolving]
  - Tinnitus [Not Recovered/Not Resolved]
  - Eye disorder [Recovering/Resolving]
  - Dizziness [Recovering/Resolving]
  - Hypoaesthesia [Recovering/Resolving]
  - Eye pain [Recovering/Resolving]
  - Visual impairment [Unknown]
  - Ear congestion [Recovering/Resolving]
  - Chills [Recovered/Resolved]
  - Palpitations [Recovered/Resolved]
  - Fatigue [Recovering/Resolving]
  - Dysphagia [Not Recovered/Not Resolved]
  - Nausea [Recovering/Resolving]
  - Hypersensitivity [Unknown]
  - Off label use [Unknown]

NARRATIVE: CASE EVENT DATE: 20220101
